FAERS Safety Report 5665303-1 (Version None)
Quarter: 2008Q1

REPORT INFORMATION
  Report Type: 
  Country: None (occurrence: None)
  Receive Date: 20080314
  Receipt Date: 20071217
  Transmission Date: 20080703
  Serious: No
  Sender: FDA-Public Use
  Company Number: US-ABBOTT-07P-163-0427330-00

PATIENT
  Sex: Female
  Weight: 68.1 kg

DRUGS (5)
  1. HUMIRA [Suspect]
     Indication: PSORIATIC ARTHROPATHY
     Route: 058
     Dates: start: 20071101
  2. VIVELLE [Concomitant]
     Indication: HORMONE REPLACEMENT THERAPY
     Route: 062
     Dates: start: 20050101
  3. BUPROPION HCL [Concomitant]
     Indication: DEPRESSION
     Dates: start: 20010101
  4. UNKNOWN HORMONE PILL [Concomitant]
     Indication: HORMONE REPLACEMENT THERAPY
  5. CYANOCOBALAMIN [Concomitant]
     Indication: VITAMIN SUPPLEMENTATION

REACTIONS (3)
  - INJECTION SITE URTICARIA [None]
  - PRURITUS [None]
  - URTICARIA [None]
